FAERS Safety Report 9971959 (Version 1)
Quarter: 2014Q1

REPORT INFORMATION
  Report Type: Report from Study
  Country: US (occurrence: US)
  Receive Date: 20140306
  Receipt Date: 20140306
  Transmission Date: 20141002
  Serious: No
  Sender: FDA-Public Use
  Company Number: US-ABBVIE-13P-163-1153670-00

PATIENT
  Sex: Female

DRUGS (2)
  1. HUMIRA [Suspect]
     Indication: RHEUMATOID ARTHRITIS
     Route: 058
  2. HUMIRA [Suspect]
     Route: 058

REACTIONS (7)
  - Dry skin [Unknown]
  - Nasal dryness [Unknown]
  - Dry eye [Unknown]
  - Injection site swelling [Unknown]
  - Pain [Unknown]
  - Injection site pruritus [Unknown]
  - Injection site bruising [Unknown]
